FAERS Safety Report 9301227 (Version 1)
Quarter: 2013Q2

REPORT INFORMATION
  Report Type: Spontaneous
  Country: US (occurrence: None)
  Receive Date: 20130520
  Receipt Date: 20130520
  Transmission Date: 20140414
  Serious: Yes (Hospitalization)
  Sender: FDA-Public Use
  Company Number: None

PATIENT
  Age: 62 Year
  Sex: Female
  Weight: 83.1 kg

DRUGS (1)
  1. DASATINIB [Suspect]

REACTIONS (7)
  - Abdominal pain upper [None]
  - Chest pain [None]
  - Nausea [None]
  - Vomiting [None]
  - Dyspnoea [None]
  - Pericardial effusion [None]
  - Cardiac tamponade [None]
